FAERS Safety Report 15341146 (Version 1)
Quarter: 2018Q3

REPORT INFORMATION
  Report Type: Spontaneous
  Country: US (occurrence: US)
  Receive Date: 20180831
  Receipt Date: 20180831
  Transmission Date: 20181010
  Serious: Yes (Death)
  Sender: FDA-Public Use
  Company Number: PHHY2018US080812

PATIENT

DRUGS (1)
  1. METHOTREXATE. [Suspect]
     Active Substance: METHOTREXATE
     Indication: PRODUCT USED FOR UNKNOWN INDICATION
     Route: 065

REACTIONS (5)
  - Nephropathy toxic [Fatal]
  - Urinary tract obstruction [Fatal]
  - Gastrointestinal haemorrhage [Fatal]
  - Anaplastic large-cell lymphoma [Fatal]
  - Toxicity to various agents [Fatal]
